FAERS Safety Report 18386523 (Version 1)
Quarter: 2020Q4

REPORT INFORMATION
  Report Type: Spontaneous
  Country: US (occurrence: US)
  Receive Date: 20201013
  Receipt Date: 20201013
  Transmission Date: 20210114
  Serious: Yes (Hospitalization)
  Sender: FDA-Public Use
  Company Number: None

PATIENT
  Age: 21 Year
  Sex: Male

DRUGS (1)
  1. CUVITRU [Suspect]
     Active Substance: HUMAN IMMUNOGLOBULIN G
     Indication: IMMUNODEFICIENCY COMMON VARIABLE
     Dosage: ?          OTHER STRENGTH:8/40 GM/ML;?
     Route: 058
     Dates: start: 20190919

REACTIONS (2)
  - Vomiting [None]
  - Abdominal distension [None]

NARRATIVE: CASE EVENT DATE: 20200920
